FAERS Safety Report 8381580-0 (Version None)
Quarter: 2012Q2

REPORT INFORMATION
  Report Type: 
  Country: None (occurrence: None)
  Receive Date: 20120523
  Receipt Date: 20120514
  Transmission Date: 20120825
  Serious: Yes (Disabling, Other)
  Sender: FDA-Public Use
  Company Number: US-MYLANLABS-2009AC000430

PATIENT
  Sex: Female
  Weight: 56.25 kg

DRUGS (19)
  1. PROPRANOLOL [Concomitant]
  2. DIGOXIN [Suspect]
     Indication: PRODUCT USED FOR UNKNOWN INDICATION
     Route: 048
     Dates: start: 20010101, end: 20091014
  3. BENAZEPRIL HYDROCHLORIDE [Concomitant]
  4. ANTIINFLAMMATORY AGENTS, NON-STEROIDS [Concomitant]
  5. ATARIL [Concomitant]
  6. ZOCOR [Concomitant]
  7. HYDROCHLOROTHIAZIDE [Concomitant]
  8. SIMVASTATIN [Concomitant]
  9. OCUVITE /01053801/ [Concomitant]
  10. WARFARIN SODIUM [Concomitant]
  11. VITAMIN D [Concomitant]
  12. FOSAMAX [Concomitant]
  13. FISH OIL [Concomitant]
  14. VITAMIN E [Concomitant]
  15. RESVERATROL [Concomitant]
  16. CALCIUM +VIT D [Concomitant]
  17. NORVASC [Concomitant]
  18. PRONESTYL [Concomitant]
  19. ADENOSINE [Concomitant]

REACTIONS (44)
  - FATIGUE [None]
  - DRUG INTOLERANCE [None]
  - SUPRAVENTRICULAR EXTRASYSTOLES [None]
  - ILL-DEFINED DISORDER [None]
  - HEADACHE [None]
  - NASOPHARYNGITIS [None]
  - BLOOD PRESSURE SYSTOLIC INCREASED [None]
  - REFUSAL OF TREATMENT BY PATIENT [None]
  - ARRHYTHMIA [None]
  - OSTEOARTHRITIS [None]
  - XANTHOPSIA [None]
  - LEFT ATRIAL DILATATION [None]
  - UTERINE LEIOMYOMA [None]
  - HYPERTENSION [None]
  - PALPITATIONS [None]
  - CARDIAC MURMUR [None]
  - ARTHRALGIA [None]
  - UPPER RESPIRATORY TRACT INFECTION [None]
  - RESPIRATORY TRACT CONGESTION [None]
  - SYNOVIAL CYST [None]
  - ECONOMIC PROBLEM [None]
  - PRESYNCOPE [None]
  - RHINORRHOEA [None]
  - CARDIAC VALVE DISEASE [None]
  - JOINT SWELLING [None]
  - ANXIETY [None]
  - ARCUS LIPOIDES [None]
  - INJURY [None]
  - DIZZINESS [None]
  - ESSENTIAL HYPERTENSION [None]
  - ELECTROCARDIOGRAM AMBULATORY ABNORMAL [None]
  - CAROTID BRUIT [None]
  - ATRIAL FIBRILLATION [None]
  - PYREXIA [None]
  - COUGH [None]
  - CATARACT [None]
  - DEAFNESS [None]
  - JOINT EFFUSION [None]
  - OSTEOPENIA [None]
  - SINUS BRADYCARDIA [None]
  - HYPERLIPIDAEMIA [None]
  - LEFT VENTRICULAR HYPERTROPHY [None]
  - CORRECTIVE LENS USER [None]
  - ELECTROCARDIOGRAM ABNORMAL [None]
